FAERS Safety Report 13644149 (Version 4)
Quarter: 2017Q3

REPORT INFORMATION
  Report Type: Report from Study
  Country: US (occurrence: US)
  Receive Date: 20170612
  Receipt Date: 20170807
  Transmission Date: 20171127
  Serious: Yes (Death, Hospitalization, Other)
  Sender: FDA-Public Use
  Company Number: US-ACTELION-A-NJ2017-149540

PATIENT
  Age: 57 Year
  Sex: Male
  Weight: 57.14 kg

DRUGS (4)
  1. LETAIRIS [Concomitant]
     Active Substance: AMBRISENTAN
  2. VELETRI [Suspect]
     Active Substance: EPOPROSTENOL
     Indication: PULMONARY HYPERTENSION
     Dosage: 20.8 NG/KG, PER MIN
     Route: 042
     Dates: start: 20120608
  3. AMLODIPINE [Concomitant]
     Active Substance: AMLODIPINE BESYLATE
  4. SILDENAFIL CITRATE. [Concomitant]
     Active Substance: SILDENAFIL CITRATE

REACTIONS (12)
  - Skin atrophy [Not Recovered/Not Resolved]
  - Decreased appetite [Unknown]
  - Catheter site erythema [Unknown]
  - Death [Fatal]
  - Skin exfoliation [Not Recovered/Not Resolved]
  - Catheter site vesicles [Unknown]
  - Hypotension [Unknown]
  - Ascites [Unknown]
  - Hepatic cirrhosis [Unknown]
  - Blood pressure decreased [Unknown]
  - Asthenia [Unknown]
  - Paracentesis [Unknown]

NARRATIVE: CASE EVENT DATE: 20170731
